FAERS Safety Report 7210089-2 (Version None)
Quarter: 2011Q1

REPORT INFORMATION
  Report Type: 
  Country: None (occurrence: None)
  Receive Date: 20110105
  Receipt Date: 20101229
  Transmission Date: 20110831
  Serious: Yes (Hospitalization, Other)
  Sender: FDA-Public Use
  Company Number: US-BAYER-200839056NA

PATIENT
  Sex: Female

DRUGS (8)
  1. BETASERON [Suspect]
     Route: 058
     Dates: start: 20100101, end: 20100205
  2. ASPIRIN [Concomitant]
  3. BETASERON [Suspect]
     Route: 058
     Dates: start: 20100318, end: 20100402
  4. BETASERON [Suspect]
     Indication: MULTIPLE SCLEROSIS
     Dosage: BETAJECT
     Route: 058
     Dates: start: 20081014, end: 20081104
  5. BETASERON [Suspect]
     Dosage: 8 MIU, QOD
     Route: 058
     Dates: end: 20100913
  6. PLAVIX [Concomitant]
  7. LORTAB [Concomitant]
  8. BETASERON [Suspect]
     Dosage: 4 MIU, QOD
     Route: 058
     Dates: start: 20100415

REACTIONS (30)
  - UMBILICAL HERNIA REPAIR [None]
  - PAIN [None]
  - BLOOD GLUCOSE DECREASED [None]
  - FATIGUE [None]
  - HYPERSOMNIA [None]
  - CHEST PAIN [None]
  - BLOOD POTASSIUM DECREASED [None]
  - BLOOD GLUCOSE INCREASED [None]
  - BREAST DISORDER [None]
  - PYREXIA [None]
  - GALLBLADDER DISORDER [None]
  - BREAST PAIN [None]
  - BREAST SWELLING [None]
  - BLOOD CHOLESTEROL INCREASED [None]
  - BREAST DISCHARGE [None]
  - VITAMIN D DEFICIENCY [None]
  - VIRAL INFECTION [None]
  - BREAST CANCER [None]
  - MYOCARDIAL INFARCTION [None]
  - ABDOMINAL DISTENSION [None]
  - NAUSEA [None]
  - DIARRHOEA [None]
  - COUGH [None]
  - CONTUSION [None]
  - GLUCOSE TOLERANCE IMPAIRED [None]
  - CORONARY ARTERY OCCLUSION [None]
  - MULTIPLE SCLEROSIS RELAPSE [None]
  - NASAL CONGESTION [None]
  - ORAL HERPES [None]
  - GLUCOSE URINE PRESENT [None]
